FAERS Safety Report 24352577 (Version 1)
Quarter: 2024Q3

REPORT INFORMATION
  Report Type: Report from Study
  Country: AT (occurrence: AT)
  Receive Date: 20240923
  Receipt Date: 20240923
  Transmission Date: 20241017
  Serious: No
  Sender: ROCHE
  Company Number: AT-ROCHE-3419781

PATIENT
  Age: 49 Year
  Sex: Female
  Weight: 64.0 kg

DRUGS (19)
  1. HERCEPTIN [Suspect]
     Active Substance: TRASTUZUMAB
     Indication: HER2 positive breast cancer
     Dosage: MOST RECENT DOSE PRIOR TO THE EVENT: 09/MAY/2019
     Route: 042
     Dates: start: 20190418, end: 20190418
  2. HERCEPTIN [Suspect]
     Active Substance: TRASTUZUMAB
     Route: 042
     Dates: start: 20230503, end: 20230724
  3. HERCEPTIN [Suspect]
     Active Substance: TRASTUZUMAB
     Route: 042
     Dates: start: 20190509, end: 20201228
  4. HERCEPTIN [Suspect]
     Active Substance: TRASTUZUMAB
     Route: 042
     Dates: start: 20230814
  5. NAVELBINE [Suspect]
     Active Substance: VINORELBINE TARTRATE
     Indication: HER2 positive breast cancer
     Route: 048
     Dates: start: 20190418, end: 20190918
  6. TUKYSA [Suspect]
     Active Substance: TUCATINIB
     Indication: HER2 positive breast cancer
     Dosage: FREQUENCY TEXT:OTHER
     Route: 048
     Dates: start: 20230509
  7. KADCYLA [Suspect]
     Active Substance: ADO-TRASTUZUMAB EMTANSINE
     Indication: HER2 positive breast cancer
     Dosage: MOST RECENT DOSE PRIOR TO THE EVENT: 11/JUL/2022 FREQUENCY: EVERY THREE 3 WEEK, MOST RECENT DOSE PRI
     Route: 042
     Dates: start: 20210118, end: 20220617
  8. KADCYLA [Suspect]
     Active Substance: ADO-TRASTUZUMAB EMTANSINE
     Route: 042
     Dates: start: 20220711, end: 20230206
  9. PERJETA [Suspect]
     Active Substance: PERTUZUMAB
     Indication: HER2 positive breast cancer
     Dosage: MOST RECENT DOSE PRIOR TO THE EVENT: 09/MAY/2019
     Route: 042
     Dates: start: 20190418, end: 20190418
  10. PERJETA [Suspect]
     Active Substance: PERTUZUMAB
     Route: 042
     Dates: start: 20190509, end: 20201228
  11. XELODA [Suspect]
     Active Substance: CAPECITABINE
     Indication: HER2 positive breast cancer
     Dosage: FREQUENCY TEXT:OTHER, 5000 MG DAY 1-14
     Route: 048
     Dates: start: 20230522, end: 20230612
  12. XELODA [Suspect]
     Active Substance: CAPECITABINE
     Dosage: FREQUENCY TEXT:OTHER
     Route: 048
     Dates: start: 20230703, end: 20230703
  13. XELODA [Suspect]
     Active Substance: CAPECITABINE
     Dosage: FREQUENCY TEXT:OTHER
     Route: 048
     Dates: start: 20230724
  14. POLYETHYLENE GLYCOL 3350\POTASSIUM CHLORIDE\SODIUM BICARBONATE\SODIUM [Concomitant]
     Active Substance: POLYETHYLENE GLYCOL 3350\POTASSIUM CHLORIDE\SODIUM BICARBONATE\SODIUM CHLORIDE
  15. NOVALGIN (AUSTRIA) [Concomitant]
     Dates: start: 20190416
  16. CIMETIDINE [Concomitant]
     Active Substance: CIMETIDINE
  17. HAEDENSA [Concomitant]
  18. ZOFRAN [Concomitant]
     Active Substance: ONDANSETRON HYDROCHLORIDE
     Dates: start: 20190416
  19. PASPERTIN [Concomitant]

REACTIONS (1)
  - Palmar-plantar erythrodysaesthesia syndrome [Recovered/Resolved]

NARRATIVE: CASE EVENT DATE: 20230724
